FAERS Safety Report 8445949-8 (Version None)
Quarter: 2012Q2

REPORT INFORMATION
  Report Type: 
  Country: None (occurrence: None)
  Receive Date: 20120323
  Receipt Date: 20111101
  Transmission Date: 20120825
  Serious: Yes (Hospitalization, Other)
  Sender: FDA-Public Use
  Company Number: 163-21880-11091241

PATIENT
  Age: 71 Year
  Sex: Female
  Weight: 97.5234 kg

DRUGS (9)
  1. KLOR-CON [Concomitant]
  2. ASPIRIN [Concomitant]
  3. REVLIMID [Suspect]
     Indication: MULTIPLE MYELOMA
     Dosage: 25 MG, X 21 DAYS, PO 25 MG, 1 IN 1 D, PO
     Route: 048
     Dates: start: 20110901, end: 20111001
  4. REVLIMID [Suspect]
     Indication: MULTIPLE MYELOMA
     Dosage: 25 MG, X 21 DAYS, PO 25 MG, 1 IN 1 D, PO
     Route: 048
     Dates: start: 20110801
  5. CYCLOBENZAPRINE [Concomitant]
  6. AMLODIPINE [Concomitant]
  7. BENICAR [Concomitant]
  8. OMEPRAZOLE [Concomitant]
  9. SIMVASTATIN [Concomitant]

REACTIONS (4)
  - DIARRHOEA [None]
  - DEHYDRATION [None]
  - SOMNOLENCE [None]
  - FATIGUE [None]
